FAERS Safety Report 7669163-9 (Version None)
Quarter: 2011Q3

REPORT INFORMATION
  Report Type: 
  Country: None (occurrence: None)
  Receive Date: 20110808
  Receipt Date: 20110727
  Transmission Date: 20111222
  Serious: Yes (Hospitalization)
  Sender: FDA-Public Use
  Company Number: PHHY2011FR45273

PATIENT
  Sex: Female

DRUGS (16)
  1. POTASSIUM CHLORIDE [Suspect]
     Dosage: 1 DF, QD
     Route: 048
     Dates: start: 20110325
  2. ATORVASTATIN CALCIUM [Concomitant]
     Dosage: 10 MG, UNK
  3. OROCAL D3 [Concomitant]
     Dosage: UNK UKN, UNK
     Dates: end: 20110325
  4. EXELON [Suspect]
     Dosage: 9.5MG/24
     Route: 062
     Dates: start: 20110410, end: 20110414
  5. ASPIRIN [Concomitant]
     Dosage: 75 MG, UNK
  6. LASIX [Suspect]
     Dosage: 20 MG, UNK
     Route: 048
  7. IMOVANE [Suspect]
     Dosage: 1 DF, QD
     Route: 048
     Dates: start: 20110328
  8. LANTUS [Concomitant]
     Dosage: UNK UKN, UNK
  9. UVEDOSE [Concomitant]
     Dosage: UNK UKN, UNK
  10. PANTOPRAZOLE SODIUM [Concomitant]
     Dosage: UNK UKN, UNK
  11. EXELON [Suspect]
     Dosage: 9.5MG/24 HR, ONE PATCH PE RDAY
     Route: 062
     Dates: start: 20090817, end: 20110406
  12. MODOPAR [Suspect]
     Dosage: 125 MG, QID
     Route: 048
     Dates: start: 20070101
  13. MEMANTINE HYDROCHLORIDE [Suspect]
     Dosage: 1 DF, BID
     Route: 048
     Dates: end: 20110406
  14. IMOVANE [Suspect]
     Dosage: 1 DF, QD
     Route: 048
     Dates: end: 20110316
  15. HUMALOG [Concomitant]
     Dosage: UNK UKN, UNK
  16. MEMANTINE HYDROCHLORIDE [Suspect]
     Dosage: 1 DF, BID
     Route: 048
     Dates: start: 20110420

REACTIONS (19)
  - CEREBRAL ATROPHY [None]
  - VAGINAL INFECTION [None]
  - CREATININE RENAL CLEARANCE DECREASED [None]
  - PANCREATITIS ACUTE [None]
  - GENERAL PHYSICAL HEALTH DETERIORATION [None]
  - URINARY RETENTION [None]
  - C-REACTIVE PROTEIN INCREASED [None]
  - RENAL FAILURE [None]
  - CYTOLYTIC HEPATITIS [None]
  - SOMNOLENCE [None]
  - DEHYDRATION [None]
  - APHASIA [None]
  - BLOOD POTASSIUM INCREASED [None]
  - INFLAMMATION [None]
  - BLOOD SODIUM INCREASED [None]
  - LIPASE INCREASED [None]
  - CULTURE URINE POSITIVE [None]
  - ALANINE AMINOTRANSFERASE INCREASED [None]
  - ASPARTATE AMINOTRANSFERASE INCREASED [None]
